FAERS Safety Report 8225226-0 (Version None)
Quarter: 2012Q1

REPORT INFORMATION
  Report Type: 
  Country: None (occurrence: None)
  Receive Date: 20120321
  Receipt Date: 20120312
  Transmission Date: 20120608
  Serious: Yes (Other)
  Sender: FDA-Public Use
  Company Number: JP-BRISTOL-MYERS SQUIBB COMPANY-16397648

PATIENT

DRUGS (1)
  1. HYDREA [Suspect]
     Indication: LEUKAEMIA
     Dosage: INTERRUPTED AND RESTARTED
     Route: 048

REACTIONS (2)
  - LARYNGEAL OEDEMA [None]
  - PHARYNGEAL OEDEMA [None]
